FAERS Safety Report 19857407 (Version 4)
Quarter: 2021Q4

REPORT INFORMATION
  Report Type: Other
  Country: US (occurrence: US)
  Receive Date: 20210920
  Receipt Date: 20211104
  Transmission Date: 20220303
  Serious: Yes (Hospitalization)
  Sender: FDA-Public Use
  Company Number: US-NEUROCRINE BIOSCIENCES INC.-2021NBI05207

PATIENT

DRUGS (4)
  1. INGREZZA [Suspect]
     Active Substance: VALBENAZINE
     Indication: Tardive dyskinesia
     Dosage: 80 MILLIGRAM, BID
     Route: 048
     Dates: start: 20190820
  2. INGREZZA [Suspect]
     Active Substance: VALBENAZINE
     Dosage: 80 MILLIGRAM, TID
     Route: 048
  3. INGREZZA [Suspect]
     Active Substance: VALBENAZINE
     Dosage: 80 MILLIGRAM, BID
     Route: 048
     Dates: start: 20210816, end: 20211012
  4. INGREZZA [Suspect]
     Active Substance: VALBENAZINE
     Dosage: UNK UNK, BID 160 MG IN MORNING AND 80 MG IN EVENING
     Route: 048
     Dates: start: 20211012

REACTIONS (5)
  - Anxiety [Not Recovered/Not Resolved]
  - Tardive dyskinesia [Not Recovered/Not Resolved]
  - Drooling [Not Recovered/Not Resolved]
  - Drug ineffective [Not Recovered/Not Resolved]
  - Prescribed overdose [Unknown]

NARRATIVE: CASE EVENT DATE: 20190820
